FAERS Safety Report 26219434 (Version 1)
Quarter: 2025Q4

REPORT INFORMATION
  Report Type: Report from Study
  Country: US (occurrence: US)
  Receive Date: 20251231
  Receipt Date: 20251231
  Transmission Date: 20260117
  Serious: Yes (Other)
  Sender: ABBVIE
  Company Number: US-ABBVIE-6611086

PATIENT
  Age: 60 Year
  Sex: Male

DRUGS (1)
  1. HUMIRA [Suspect]
     Active Substance: ADALIMUMAB
     Indication: Crohn^s disease
     Route: 058
     Dates: start: 20230523

REACTIONS (4)
  - Colostomy bag user [Unknown]
  - Procedural pain [Not Recovered/Not Resolved]
  - Rectal abscess [Not Recovered/Not Resolved]
  - Proctitis [Not Recovered/Not Resolved]
